FAERS Safety Report 10025327 (Version 5)
Quarter: 2014Q2

REPORT INFORMATION
  Report Type: Spontaneous
  Country: IL (occurrence: IL)
  Receive Date: 20140320
  Receipt Date: 20140409
  Transmission Date: 20141212
  Serious: Yes (Death, Hospitalization, Other)
  Sender: FDA-Public Use
  Company Number: IL-PFIZER INC-2014044872

PATIENT
  Age: 82 Year
  Sex: Male

DRUGS (7)
  1. SUTENT [Suspect]
     Indication: METASTATIC RENAL CELL CARCINOMA
     Dosage: 50 MG, 1X/DAY, CYCLIC (12 DAYS TREATMENT, 8 DAYS REST)
     Route: 048
     Dates: start: 20130904
  2. SUTENT [Suspect]
     Dosage: 50 MG, ALTERNATE DAY
     Route: 048
     Dates: end: 20140324
  3. OMEPRADEX [Concomitant]
     Dosage: UNK
  4. TARGIN [Concomitant]
     Dosage: UNK
  5. OCSAAR [Concomitant]
     Dosage: UNK
  6. VOLTAREN [Concomitant]
     Dosage: UNK
  7. VITAMIN D [Concomitant]
     Dosage: UNK

REACTIONS (15)
  - Disease progression [Fatal]
  - Metastatic renal cell carcinoma [Fatal]
  - Urinary retention [Recovering/Resolving]
  - Diarrhoea haemorrhagic [Recovered/Resolved]
  - Asthenia [Not Recovered/Not Resolved]
  - Decreased appetite [Not Recovered/Not Resolved]
  - Depressed mood [Not Recovered/Not Resolved]
  - Wound [Not Recovered/Not Resolved]
  - Swelling face [Recovering/Resolving]
  - Gingival swelling [Recovering/Resolving]
  - Fall [Unknown]
  - Constipation [Not Recovered/Not Resolved]
  - Blood urine present [Not Recovered/Not Resolved]
  - Haematoma [Unknown]
  - Decubitus ulcer [Unknown]
